FAERS Safety Report 9393579 (Version 2)
Quarter: 2013Q3

REPORT INFORMATION
  Report Type: Report from Study
  Country: US (occurrence: US)
  Receive Date: 20130710
  Receipt Date: 20130715
  Transmission Date: 20140515
  Serious: Yes (Death, Other)
  Sender: FDA-Public Use
  Company Number: US-PFIZER INC-2013200306

PATIENT
  Age: 58 Year
  Sex: Female
  Weight: 58 kg

DRUGS (7)
  1. BLINDED CELECOXIB [Suspect]
     Indication: NON-SMALL CELL LUNG CANCER
     Dosage: CYCLE 1-6, 400MG, BID DAYS 1 TO 21
     Route: 048
     Dates: start: 20130531
  2. BLINDED PLACEBO [Suspect]
     Indication: NON-SMALL CELL LUNG CANCER
     Dosage: CYCLE 1-6, 400MG, BID DAYS 1 TO 21
     Route: 048
     Dates: start: 20130531
  3. BLINDED CELECOXIB [Suspect]
     Dosage: CYCLE 7+:400MG, BID DAYS 1 TO 21
     Route: 048
     Dates: start: 20130531
  4. BLINDED PLACEBO [Suspect]
     Dosage: CYCLE 7+:400MG, BID DAYS 1 TO 21
     Route: 048
     Dates: start: 20130531
  5. CARBOPLATIN [Suspect]
     Indication: NON-SMALL CELL LUNG CANCER
     Dosage: AUC WAS 5.5, DAY 1(AUC WAS 5.0 WITH PRIOR CHEST RADIOTHERAPY)
     Route: 042
     Dates: start: 20130531
  6. GEMCITABINE HYDROCHLORIDE [Suspect]
     Indication: NON-SMALL CELL LUNG CANCER
     Dosage: 1000 MG/M2, DAYS 1 AND 8
     Route: 042
     Dates: start: 20130531
  7. GLIPIZIDE [Concomitant]

REACTIONS (7)
  - Death [Fatal]
  - Fatigue [Unknown]
  - Peripheral sensory neuropathy [Unknown]
  - Anaemia [Unknown]
  - Dyspnoea [Unknown]
  - Chronic obstructive pulmonary disease [Unknown]
  - Pain [Unknown]
